FAERS Safety Report 17680029 (Version 1)
Quarter: 2020Q2

REPORT INFORMATION
  Report Type: Spontaneous
  Country: US (occurrence: US)
  Receive Date: 20200417
  Receipt Date: 20200417
  Transmission Date: 20200714
  Serious: Yes (Hospitalization)
  Sender: FDA-Public Use
  Company Number: None

PATIENT
  Age: 87 Year
  Sex: Male
  Weight: 75.3 kg

DRUGS (1)
  1. BACLOFEN (BACLOFEN 10MG TAB) [Suspect]
     Active Substance: BACLOFEN
     Route: 048
     Dates: start: 20191022, end: 20191102

REACTIONS (2)
  - Confusional state [None]
  - Toxic encephalopathy [None]

NARRATIVE: CASE EVENT DATE: 20191102
